FAERS Safety Report 8589896-X (Version None)
Quarter: 2012Q3

REPORT INFORMATION
  Report Type: 
  Country: None (occurrence: None)
  Receive Date: 20120813
  Receipt Date: 19900122
  Transmission Date: 20120928
  Serious: Yes (Other)
  Sender: FDA-Public Use
  Company Number: US-ROCHE-1098950

PATIENT
  Age: 63 Year
  Sex: Male

DRUGS (4)
  1. ACTIVASE [Suspect]
     Indication: ACUTE MYOCARDIAL INFARCTION
  2. TOLINASE [Concomitant]
  3. TENORMIN [Suspect]
     Dosage: DOSE DECREASED
  4. TENORMIN [Suspect]
     Indication: PRODUCT USED FOR UNKNOWN INDICATION

REACTIONS (5)
  - HYPOTENSION [None]
  - VENTRICULAR EXTRASYSTOLES [None]
  - BRADYCARDIA [None]
  - ATRIOVENTRICULAR BLOCK SECOND DEGREE [None]
  - EXTRASYSTOLES [None]
